FAERS Safety Report 6190028-6 (Version None)
Quarter: 2009Q2

REPORT INFORMATION
  Report Type: 
  Country: None (occurrence: None)
  Receive Date: 20090514
  Receipt Date: 20090505
  Transmission Date: 20091009
  Serious: Yes (Other)
  Sender: FDA-Public Use
  Company Number: US-AVENTIS-200817571US

PATIENT
  Sex: Female
  Weight: 65.8 kg

DRUGS (13)
  1. KETEK [Suspect]
     Indication: SINUSITIS
     Dates: start: 20060313, end: 20060323
  2. LIPITOR [Suspect]
     Dates: start: 20040101, end: 20060301
  3. LIPITOR [Suspect]
     Dosage: DOSE: UNK
     Dates: start: 20060810, end: 20060101
  4. LIPITOR [Suspect]
     Dosage: DOSE: UNK
     Dates: start: 20060912
  5. CIPRO [Suspect]
     Indication: URINARY TRACT INFECTION
     Dates: start: 20060405, end: 20060410
  6. LEXAPRO [Concomitant]
  7. ATIVAN [Concomitant]
     Dosage: DOSE: UNK
  8. CYTOMEL [Concomitant]
  9. LUNESTA [Concomitant]
     Dosage: DOSE: UNK
  10. SYNTHROID [Concomitant]
  11. AXERT [Concomitant]
     Indication: MIGRAINE
     Dates: start: 20060405
  12. NASACORT AQ [Concomitant]
     Indication: SINUS CONGESTION
     Dosage: DOSE: UNK
     Dates: start: 20060405
  13. AUGMENTIN '125' [Concomitant]
     Indication: SINUSITIS
     Dosage: DOSE: UNK
     Dates: start: 20060501

REACTIONS (11)
  - ABDOMINAL PAIN UPPER [None]
  - BACK PAIN [None]
  - BLOOD URINE PRESENT [None]
  - CHROMATURIA [None]
  - EOSINOPHILIA [None]
  - FEELING HOT [None]
  - HEPATITIS [None]
  - LIVER FUNCTION TEST ABNORMAL [None]
  - OCULAR ICTERUS [None]
  - PRURITUS [None]
  - URINARY TRACT INFECTION [None]
